FAERS Safety Report 13101596 (Version 1)
Quarter: 2017Q1

REPORT INFORMATION
  Report Type: Spontaneous
  Country: US (occurrence: US)
  Receive Date: 20170110
  Receipt Date: 20170110
  Transmission Date: 20170428
  Serious: No
  Sender: FDA-Public Use
  Company Number: US-ELI_LILLY_AND_COMPANY-US201701001775

PATIENT
  Sex: Male

DRUGS (3)
  1. HUMAN INSULIN (RDNA) 25% LISPRO, 75% NPL [Suspect]
     Active Substance: INSULIN LISPRO
     Dosage: UNK UNK, PRN
     Route: 065
  2. HUMAN INSULIN (RDNA) 25% LISPRO, 75% NPL [Suspect]
     Active Substance: INSULIN LISPRO
     Dosage: UNK UNK, PRN
     Route: 065
  3. HUMAN INSULIN (RDNA) 25% LISPRO, 75% NPL [Suspect]
     Active Substance: INSULIN LISPRO
     Indication: TYPE 2 DIABETES MELLITUS
     Dosage: UNK, PRN
     Route: 065
     Dates: start: 2012

REACTIONS (2)
  - Incorrect drug administration duration [Not Recovered/Not Resolved]
  - Blood glucose increased [Not Recovered/Not Resolved]
